FAERS Safety Report 6600664-8 (Version None)
Quarter: 2010Q1

REPORT INFORMATION
  Report Type: 
  Country: None (occurrence: None)
  Receive Date: 20100223
  Receipt Date: 20100223
  Transmission Date: 20100710
  Serious: Yes (Death, Other)
  Sender: FDA-Public Use
  Company Number: None

PATIENT
  Age: 33 Year
  Sex: Female
  Weight: 76.2043 kg

DRUGS (2)
  1. ZOFRAN [Suspect]
     Indication: VOMITING IN PREGNANCY
     Dosage: 4 MG Q8 HRS PO
     Route: 048
     Dates: start: 20091210, end: 20100211
  2. VITAMIN TAB [Concomitant]

REACTIONS (4)
  - AGITATION [None]
  - COMPLETED SUICIDE [None]
  - DRUG EXPOSURE DURING PREGNANCY [None]
  - INSOMNIA [None]
